FAERS Safety Report 4455500-5 (Version None)
Quarter: 2004Q3

REPORT INFORMATION
  Report Type: 
  Country: None (occurrence: None)
  Receive Date: 20040917
  Receipt Date: 20040903
  Transmission Date: 20050211
  Serious: Yes (Hospitalization)
  Sender: FDA-Public Use
  Company Number: 04P-163-0272411-00

PATIENT
  Age: 82 Year
  Sex: Female
  Weight: 79.8331 kg

DRUGS (6)
  1. HUMIRA [Suspect]
     Indication: RHEUMATOID ARTHRITIS
     Dosage: 40 MG, 1 IN 2 WK, SUBCUTANEOUS
     Route: 058
     Dates: start: 20030101
  2. GLIPIZIDE [Concomitant]
  3. FUROSEMIDE [Concomitant]
  4. POTASSIUM [Concomitant]
  5. CELECOXIB [Concomitant]
  6. FLUVASTATIN SODIUM [Concomitant]

REACTIONS (3)
  - ANOREXIA [None]
  - HEART RATE DECREASED [None]
  - MALAISE [None]
